FAERS Safety Report 25208189 (Version 1)
Quarter: 2025Q2

REPORT INFORMATION
  Report Type: Spontaneous
  Country: US (occurrence: US)
  Receive Date: 20250417
  Receipt Date: 20250417
  Transmission Date: 20250717
  Serious: No
  Sender: BLUEPRINT MEDICINES
  Company Number: US-Blueprint Medicines Corporation-2025-AER-00743

PATIENT
  Age: 67 Year
  Sex: Male

DRUGS (16)
  1. AYVAKIT [Suspect]
     Active Substance: AVAPRITINIB
     Indication: Gastrointestinal stromal tumour
     Route: 065
  2. Aspirin oral [Concomitant]
     Indication: Product used for unknown indication
     Route: 048
  3. Coreg oral [Concomitant]
     Indication: Product used for unknown indication
     Route: 048
  4. LANTUS SOLOSTAR [Concomitant]
     Active Substance: INSULIN GLARGINE
     Indication: Product used for unknown indication
     Route: 065
  5. Lipitor oral [Concomitant]
     Indication: Product used for unknown indication
     Route: 048
  6. Metformin HCl oral [Concomitant]
     Indication: Product used for unknown indication
     Route: 048
  7. Pepcid oral [Concomitant]
     Indication: Product used for unknown indication
     Route: 048
  8. Plavix oral [Concomitant]
     Indication: Product used for unknown indication
     Route: 048
  9. PROAIR HFA [Concomitant]
     Active Substance: ALBUTEROL SULFATE
     Indication: Product used for unknown indication
     Route: 065
  10. PROCHLORPERAZINE MALEATE [Concomitant]
     Active Substance: PROCHLORPERAZINE MALEATE
     Indication: Product used for unknown indication
     Route: 065
  11. SPIRIVA [Concomitant]
     Active Substance: TIOTROPIUM BROMIDE MONOHYDRATE
     Indication: Product used for unknown indication
     Route: 065
  12. Symbicort Inhalation [Concomitant]
     Indication: Product used for unknown indication
     Route: 055
  13. TRIAMCINOLONE ACETONIDE [Concomitant]
     Active Substance: TRIAMCINOLONE ACETONIDE
     Indication: Product used for unknown indication
     Route: 065
  14. Ultram oral [Concomitant]
     Indication: Product used for unknown indication
     Route: 048
  15. Zofran oral [Concomitant]
     Indication: Product used for unknown indication
     Route: 048
  16. Zoloft oral [Concomitant]
     Indication: Product used for unknown indication
     Route: 048

REACTIONS (2)
  - Nausea [Not Recovered/Not Resolved]
  - Abdominal distension [Not Recovered/Not Resolved]
